FAERS Safety Report 14252389 (Version 1)
Quarter: 2017Q4

REPORT INFORMATION
  Report Type: Spontaneous
  Country: US (occurrence: US)
  Receive Date: 20171205
  Receipt Date: 20171205
  Transmission Date: 20180321
  Serious: Yes (Other)
  Sender: FDA-Public Use
  Company Number: US-PFIZER INC-2017519314

PATIENT
  Age: 36 Year
  Sex: Female

DRUGS (18)
  1. CELLCEPT [Concomitant]
     Active Substance: MYCOPHENOLATE MOFETIL\MYCOPHENOLATE MOFETIL HYDROCHLORIDE
     Dosage: UNK (DOSE INCREASED)
     Dates: start: 201409
  2. FAMIVIR [Concomitant]
     Active Substance: FAMCICLOVIR
     Indication: NEUROSARCOIDOSIS
     Dosage: UNK
  3. CELLCEPT [Concomitant]
     Active Substance: MYCOPHENOLATE MOFETIL\MYCOPHENOLATE MOFETIL HYDROCHLORIDE
     Indication: NEUROSARCOIDOSIS
     Dosage: 2 G, DAILY
  4. SOLU-MEDROL [Suspect]
     Active Substance: METHYLPREDNISOLONE SODIUM SUCCINATE
     Indication: BALANCE DISORDER
  5. SOLU-MEDROL [Suspect]
     Active Substance: METHYLPREDNISOLONE SODIUM SUCCINATE
     Indication: GAIT DISTURBANCE
  6. CLONAZEPAM. [Concomitant]
     Active Substance: CLONAZEPAM
     Indication: NEUROSARCOIDOSIS
     Dosage: UNK
  7. PREDNISONE. [Suspect]
     Active Substance: PREDNISONE
     Indication: TINNITUS
     Dosage: 60 MG, DAILY
     Route: 042
     Dates: start: 201409
  8. PREDNISONE. [Suspect]
     Active Substance: PREDNISONE
     Indication: GAIT DISTURBANCE
  9. PREDNISONE. [Suspect]
     Active Substance: PREDNISONE
     Indication: AGITATION
  10. VALTREX [Concomitant]
     Active Substance: VALACYCLOVIR HYDROCHLORIDE
     Indication: NEUROSARCOIDOSIS
     Dosage: UNK
  11. SOLU-MEDROL [Suspect]
     Active Substance: METHYLPREDNISOLONE SODIUM SUCCINATE
     Indication: AGITATION
  12. SOLU-MEDROL [Suspect]
     Active Substance: METHYLPREDNISOLONE SODIUM SUCCINATE
     Indication: FATIGUE
  13. PREDNISONE. [Suspect]
     Active Substance: PREDNISONE
     Indication: HYPERACUSIS
     Dosage: 12 MG, DAILY (ON A SLOWER TAPER)
  14. INFLIXIMAB [Concomitant]
     Active Substance: INFLIXIMAB
     Indication: NEUROSARCOIDOSIS
     Dosage: 5 MG/KG, UNK (INITIALLY EVERY 4 WEEKS AND THEN EVERY 6 WEEKS)
  15. SOLU-MEDROL [Suspect]
     Active Substance: METHYLPREDNISOLONE SODIUM SUCCINATE
     Indication: HYPERACUSIS
     Dosage: UNK, (PULSE)
     Route: 042
     Dates: start: 201409
  16. SOLU-MEDROL [Suspect]
     Active Substance: METHYLPREDNISOLONE SODIUM SUCCINATE
     Indication: TINNITUS
  17. PREDNISONE. [Suspect]
     Active Substance: PREDNISONE
     Indication: BALANCE DISORDER
     Dosage: 1.5 MG, DAILY
     Route: 042
     Dates: start: 201506
  18. PREDNISONE. [Suspect]
     Active Substance: PREDNISONE
     Indication: FATIGUE

REACTIONS (1)
  - Suicidal behaviour [Unknown]
